FAERS Safety Report 7808326-6 (Version None)
Quarter: 2011Q4

REPORT INFORMATION
  Report Type: 
  Country: None (occurrence: None)
  Receive Date: 20111012
  Receipt Date: 20111006
  Transmission Date: 20120403
  Serious: No
  Sender: FDA-Public Use
  Company Number: US-BIOGENIDEC-2011BI038446

PATIENT
  Sex: Female

DRUGS (3)
  1. AVONEX [Suspect]
     Indication: MULTIPLE SCLEROSIS
     Route: 030
     Dates: start: 20050803, end: 20050828
  2. UNSPECIFIED MEDICINE [Concomitant]
     Indication: DEMENTIA ALZHEIMER'S TYPE
  3. UNSPECIFIED MEDICINE [Concomitant]
     Indication: DEMENTIA

REACTIONS (5)
  - ADVERSE REACTION [None]
  - DEMENTIA [None]
  - FIBROMYALGIA [None]
  - DEMENTIA ALZHEIMER'S TYPE [None]
  - PYREXIA [None]
